FAERS Safety Report 8036907-6 (Version None)
Quarter: 2012Q1

REPORT INFORMATION
  Report Type: 
  Country: None (occurrence: None)
  Receive Date: 20120111
  Receipt Date: 20120105
  Transmission Date: 20120608
  Serious: No
  Sender: FDA-Public Use
  Company Number: US-PFIZER INC-2012003511

PATIENT
  Sex: Female

DRUGS (4)
  1. ARTHROTEC [Suspect]
     Dosage: UNK
     Dates: start: 20090101, end: 20111211
  2. LIPITOR [Suspect]
     Dosage: UNK
     Dates: start: 20090101, end: 20111211
  3. NEURONTIN [Suspect]
     Dosage: UNK
     Dates: start: 20090101, end: 20111211
  4. ACCUPRIL [Suspect]
     Dosage: UNK
     Dates: start: 20090101, end: 20111211

REACTIONS (2)
  - ARTHRITIS [None]
  - GOUT [None]
